FAERS Safety Report 17974190 (Version 1)
Quarter: 2020Q3

REPORT INFORMATION
  Report Type: Spontaneous
  Country: US (occurrence: US)
  Receive Date: 20200701
  Receipt Date: 20200701
  Transmission Date: 20201103
  Serious: Yes (Other)
  Sender: FDA-Public Use
  Company Number: None

PATIENT
  Age: 37 Year
  Sex: Female
  Weight: 61.23 kg

DRUGS (7)
  1. LEVOXYL [Suspect]
     Active Substance: LEVOTHYROXINE SODIUM
     Route: 048
  2. FOLIC ACID. [Concomitant]
     Active Substance: FOLIC ACID
  3. VITAMIN B12 [Concomitant]
     Active Substance: CYANOCOBALAMIN
  4. ADDERALL [Concomitant]
     Active Substance: AMPHETAMINE ASPARTATE\AMPHETAMINE SULFATE\DEXTROAMPHETAMINE SACCHARATE\DEXTROAMPHETAMINE SULFATE
  5. ZIPRASIDONE HYDROCHLORIDE. [Concomitant]
     Active Substance: ZIPRASIDONE HYDROCHLORIDE
  6. LEVOTHYROXINE 25MCG [Suspect]
     Active Substance: LEVOTHYROXINE
     Indication: PRODUCT SUBSTITUTION
     Dosage: ?          QUANTITY:1 DF DOSAGE FORM;?
     Route: 048
     Dates: start: 20200511, end: 20200520
  7. XANAX [Concomitant]
     Active Substance: ALPRAZOLAM

REACTIONS (5)
  - Insurance issue [None]
  - Asthenia [None]
  - Alopecia [None]
  - Weight increased [None]
  - Product substitution issue [None]

NARRATIVE: CASE EVENT DATE: 20200513
